FAERS Safety Report 21646666 (Version 1)
Quarter: 2022Q4

REPORT INFORMATION
  Report Type: Report from Study
  Country: US (occurrence: US)
  Receive Date: 20221127
  Receipt Date: 20221127
  Transmission Date: 20230113
  Serious: No
  Sender: FDA-Public Use
  Company Number: US-GE HEALTHCARE-2022CSU008232

PATIENT
  Age: 56 Year
  Sex: Female

DRUGS (2)
  1. GADOLINIUM [Suspect]
     Active Substance: GADOLINIUM
     Indication: Magnetic resonance imaging breast
     Dosage: 0.1 MMOL/ KG, SINGLE
     Route: 042
  2. GADOLINIUM [Suspect]
     Active Substance: GADOLINIUM
     Indication: Breast cancer

REACTIONS (2)
  - Neurological examination abnormal [Unknown]
  - Neuropsychological test abnormal [Unknown]
